FAERS Safety Report 20523709 (Version 1)
Quarter: 2022Q1

REPORT INFORMATION
  Report Type: Report from Study
  Country: CA (occurrence: CA)
  Receive Date: 20220228
  Receipt Date: 20220228
  Transmission Date: 20220424
  Serious: Yes (Other)
  Sender: FDA-Public Use
  Company Number: None

PATIENT
  Age: 65 Year
  Sex: Female

DRUGS (18)
  1. METHOTREXATE [Suspect]
     Active Substance: METHOTREXATE
     Indication: Product used for unknown indication
  2. ONDANSETRON [Suspect]
     Active Substance: ONDANSETRON
     Indication: Product used for unknown indication
  3. PANTOPRAZOLE [Suspect]
     Active Substance: PANTOPRAZOLE
     Indication: Product used for unknown indication
  4. CITALOPRAM [Suspect]
     Active Substance: CITALOPRAM HYDROBROMIDE
     Indication: Product used for unknown indication
     Dosage: 1 EVERY 1 DAYS
  5. CODEINE [Suspect]
     Active Substance: CODEINE
     Indication: Product used for unknown indication
  6. LORAZEPAM [Suspect]
     Active Substance: LORAZEPAM
     Indication: Product used for unknown indication
  7. OXYCODONE [Suspect]
     Active Substance: OXYCODONE
     Indication: Product used for unknown indication
     Dosage: 2 EVERY 1 DAYS
  8. ACTEMRA [Concomitant]
     Active Substance: TOCILIZUMAB
     Route: 058
  9. ADVAIR HFA [Concomitant]
     Active Substance: FLUTICASONE PROPIONATE\SALMETEROL XINAFOATE
     Route: 055
  10. ANAKINRA [Concomitant]
     Active Substance: ANAKINRA
  11. BARICITINIB [Concomitant]
     Active Substance: BARICITINIB
  12. CELEBREX [Concomitant]
     Active Substance: CELECOXIB
     Dosage: 2 EVERY 1 DAYS
     Route: 048
  13. ENBREL [Concomitant]
     Active Substance: ETANERCEPT
     Route: 058
  14. PREDNISONE [Concomitant]
     Active Substance: PREDNISONE
  15. SILVER SULFADIAZINE [Concomitant]
     Active Substance: SILVER SULFADIAZINE
  16. TOFACITINIB [Concomitant]
     Active Substance: TOFACITINIB
  17. WELLBUTRIN [Concomitant]
     Active Substance: BUPROPION HYDROCHLORIDE
     Dosage: 1 EVERY 1 DAYS
  18. VENTOLIN [Concomitant]
     Active Substance: ALBUTEROL SULFATE
     Route: 055

REACTIONS (44)
  - Abdominal pain [Unknown]
  - Arthralgia [Unknown]
  - Autoinflammatory disease [Unknown]
  - Balance disorder [Unknown]
  - Bone pain [Unknown]
  - Bronchial hyperreactivity [Unknown]
  - C-reactive protein abnormal [Unknown]
  - Chest pain [Unknown]
  - Conjunctivitis [Unknown]
  - Condition aggravated [Unknown]
  - Cough [Unknown]
  - Decreased appetite [Unknown]
  - Delirium [Unknown]
  - Depression [Unknown]
  - Diarrhoea [Unknown]
  - Discomfort [Unknown]
  - Epistaxis [Unknown]
  - Eye swelling [Unknown]
  - Facial pain [Unknown]
  - Fatigue [Unknown]
  - Fine motor skill dysfunction [Unknown]
  - Headache [Unknown]
  - Illness [Unknown]
  - Injection site reaction [Unknown]
  - Joint swelling [Unknown]
  - Limb discomfort [Unknown]
  - Lip swelling [Unknown]
  - Lymphadenopathy [Unknown]
  - Memory impairment [Unknown]
  - Muscle spasms [Unknown]
  - Myalgia [Unknown]
  - Nasal ulcer [Unknown]
  - Nausea [Unknown]
  - Neck pain [Unknown]
  - Nervousness [Unknown]
  - Pain in extremity [Unknown]
  - Peripheral swelling [Unknown]
  - Skin discolouration [Unknown]
  - Spinal pain [Unknown]
  - Tachycardia [Unknown]
  - Ulcerative keratitis [Unknown]
  - Vision blurred [Unknown]
  - Vomiting [Unknown]
  - Drug ineffective [Unknown]
